FAERS Safety Report 9155079 (Version 1)
Quarter: 2013Q1

REPORT INFORMATION
  Report Type: Spontaneous
  Country: US (occurrence: US)
  Receive Date: 20130311
  Receipt Date: 20130311
  Transmission Date: 20140127
  Serious: Yes (Life-Threatening, Other)
  Sender: FDA-Public Use
  Company Number: US-GLAXOSMITHKLINE-A1014179A

PATIENT
  Age: 52 Year
  Sex: Female

DRUGS (2)
  1. BENLYSTA [Suspect]
     Indication: SYSTEMIC LUPUS ERYTHEMATOSUS
     Dosage: 900MG CYCLIC
     Route: 042
     Dates: start: 20130212, end: 20130226
  2. UNKNOWN [Concomitant]

REACTIONS (11)
  - Anaphylactic reaction [Recovered/Resolved]
  - Anxiety [Recovered/Resolved]
  - Malaise [Recovered/Resolved]
  - Tremor [Recovered/Resolved]
  - Vomiting [Recovered/Resolved]
  - Wheezing [Recovered/Resolved]
  - Stridor [Recovered/Resolved]
  - Chest discomfort [Recovered/Resolved]
  - Panic reaction [Recovered/Resolved]
  - Hyperhidrosis [Recovered/Resolved]
  - Respiratory disorder [Recovered/Resolved]
